FAERS Safety Report 5672074-1 (Version None)
Quarter: 2008Q1

REPORT INFORMATION
  Report Type: 
  Country: None (occurrence: None)
  Receive Date: 20080319
  Receipt Date: 20080319
  Transmission Date: 20080703
  Serious: Yes (Death)
  Sender: FDA-Public Use
  Company Number: None

PATIENT
  Sex: Male
  Weight: 68.0396 kg

DRUGS (1)
  1. HEPARIN [Suspect]
     Indication: VASCULAR GRAFT
     Dosage: IV
     Route: 042

REACTIONS (9)
  - BLOOD SODIUM INCREASED [None]
  - GAIT DISTURBANCE [None]
  - HEART RATE INCREASED [None]
  - NOSOCOMIAL INFECTION [None]
  - PARADOXICAL DRUG REACTION [None]
  - PLATELET COUNT DECREASED [None]
  - PNEUMONIA [None]
  - PULMONARY THROMBOSIS [None]
  - THROMBOSIS [None]
